FAERS Safety Report 18283650 (Version 7)
Quarter: 2021Q2

REPORT INFORMATION
  Report Type: Spontaneous
  Country: US (occurrence: US)
  Receive Date: 20200918
  Receipt Date: 20210608
  Transmission Date: 20210717
  Serious: No
  Sender: FDA-Public Use
  Company Number: US-PFIZER INC-2020359817

PATIENT
  Age: 68 Year
  Sex: Female
  Weight: 81.65 kg

DRUGS (2)
  1. PREMARIN [Suspect]
     Active Substance: ESTROGENS, CONJUGATED
     Indication: MENOPAUSAL SYMPTOMS
     Dosage: UNK, THREE DAYS A WEEK
     Route: 067
     Dates: start: 2020
  2. PREMARIN [Suspect]
     Active Substance: ESTROGENS, CONJUGATED
     Indication: VULVOVAGINAL PAIN
     Dosage: UNK
     Route: 067
     Dates: start: 201908

REACTIONS (3)
  - Eye disorder [Unknown]
  - Expired product administered [Unknown]
  - Off label use [Unknown]
